FAERS Safety Report 6282559-5 (Version None)
Quarter: 2009Q4

REPORT INFORMATION
  Report Type: 
  Country: None (occurrence: None)
  Receive Date: 20090722
  Receipt Date: 20090722
  Transmission Date: 20100525
  Serious: No
  Sender: FDA-Public Use
  Company Number: None

PATIENT
  Age: 40 Year
  Sex: Female

DRUGS (9)
  1. PYRAZINAMIDE [Suspect]
     Dates: start: 20060601, end: 20060601
  2. RIFAMPICIN [Suspect]
     Dates: start: 20060601, end: 20060601
  3. ISONIAZID [Suspect]
     Dates: start: 20060601, end: 20060601
  4. ADVIL [Concomitant]
  5. TYLENOL (CAPLET) [Concomitant]
  6. IV FLUIDS NORMAL SALINE [Concomitant]
  7. ZOFRAN [Concomitant]
  8. MORPHINE [Concomitant]
  9. FRESH FROZEN PLASMA [Concomitant]

REACTIONS (14)
  - ABDOMINAL PAIN [None]
  - AMMONIA INCREASED [None]
  - COAGULOPATHY [None]
  - ENCEPHALOPATHY [None]
  - HEPATOTOXICITY [None]
  - INTERNATIONAL NORMALISED RATIO INCREASED [None]
  - JAUNDICE [None]
  - LIVER FUNCTION TEST ABNORMAL [None]
  - LIVER INJURY [None]
  - MALAISE [None]
  - NAUSEA [None]
  - PROTHROMBIN TIME PROLONGED [None]
  - PYREXIA [None]
  - VOMITING [None]
